APPROVED DRUG PRODUCT: ISMO
Active Ingredient: ISOSORBIDE MONONITRATE
Strength: 20MG
Dosage Form/Route: TABLET;ORAL
Application: N019091 | Product #001
Applicant: PROMIUS PHARMA LLC
Approved: Dec 30, 1991 | RLD: No | RS: No | Type: DISCN